FAERS Safety Report 16072527 (Version 1)
Quarter: 2019Q1

REPORT INFORMATION
  Report Type: Spontaneous
  Country: AU (occurrence: AU)
  Receive Date: 20190314
  Receipt Date: 20190314
  Transmission Date: 20190418
  Serious: Yes (Other)
  Sender: FDA-Public Use
  Company Number: AU-TEVA-2019-AU-1024178

PATIENT
  Sex: Female

DRUGS (4)
  1. PACLITAXEL INJECTION 100/16.7MG/ML AND 300/50MG/ML [Suspect]
     Active Substance: PACLITAXEL
     Route: 065
  2. PERTUZUMAB. [Suspect]
     Active Substance: PERTUZUMAB
     Route: 065
  3. TRASTUZUMAB. [Suspect]
     Active Substance: TRASTUZUMAB
     Route: 065
  4. BAXTER SODIUM CHLORIDE 0.9% IRRIGATION SOLUTION BOTTLE AHF7975/7123/71 [Suspect]
     Active Substance: SODIUM CHLORIDE
     Route: 065

REACTIONS (1)
  - Pneumonitis [Unknown]
